FAERS Safety Report 8059001-7 (Version None)
Quarter: 2012Q1

REPORT INFORMATION
  Report Type: 
  Country: None (occurrence: None)
  Receive Date: 20120112
  Receipt Date: 20111230
  Transmission Date: 20120608
  Serious: Yes (Disabling)
  Sender: FDA-Public Use
  Company Number: FK201200002

PATIENT
  Age: 63 Year
  Sex: Female

DRUGS (4)
  1. PROPOFOL [Suspect]
     Indication: GENERAL ANAESTHESIA
     Dates: start: 20100114, end: 20100114
  2. LIDOCAINE [Suspect]
     Indication: GENERAL ANAESTHESIA
     Dates: start: 20100114, end: 20100114
  3. FENTANYL [Suspect]
     Indication: GENERAL ANAESTHESIA
     Dates: start: 20100114, end: 20100114
  4. NAROPIN [Suspect]
     Indication: GENERAL ANAESTHESIA
     Dates: start: 20100114, end: 20100114

REACTIONS (11)
  - DISCOMFORT [None]
  - BLOOD PRESSURE DECREASED [None]
  - HYPOAESTHESIA [None]
  - SPEECH DISORDER [None]
  - CHOKING SENSATION [None]
  - MEMORY IMPAIRMENT [None]
  - HEADACHE [None]
  - HYPERAESTHESIA [None]
  - PARAESTHESIA [None]
  - DYSPNOEA [None]
  - SALIVARY HYPERSECRETION [None]
